FAERS Safety Report 5085844-8 (Version None)
Quarter: 2006Q3

REPORT INFORMATION
  Report Type: 
  Country: None (occurrence: None)
  Receive Date: 20060817
  Receipt Date: 20060808
  Transmission Date: 20061208
  Serious: Yes (Hospitalization)
  Sender: FDA-Public Use
  Company Number: MEDI-0004834

PATIENT
  Age: 53 Year
  Sex: Male
  Weight: 97.977 kg

DRUGS (7)
  1. ETHYOL [Suspect]
     Indication: RADIOTHERAPY
     Dosage: 500 MG, 5 IN 5 D, SUBCUTANEOUS
     Route: 058
     Dates: start: 20060713, end: 20060726
  2. RADIATION THERAPY [Concomitant]
  3. TAXOL [Concomitant]
  4. PHENERGAN [Concomitant]
  5. VALIUM [Concomitant]
  6. REGLAN [Concomitant]
  7. DEXAMETHASONE [Concomitant]

REACTIONS (10)
  - ASTHENIA [None]
  - BLOOD CHLORIDE DECREASED [None]
  - BLOOD SODIUM DECREASED [None]
  - CHEST PAIN [None]
  - DYSPNOEA [None]
  - FEELING ABNORMAL [None]
  - INFLUENZA LIKE ILLNESS [None]
  - NAUSEA [None]
  - PCO2 DECREASED [None]
  - VOMITING [None]
